FAERS Safety Report 13781070 (Version 1)
Quarter: 2017Q3

REPORT INFORMATION
  Report Type: Spontaneous
  Country: US (occurrence: US)
  Receive Date: 20170722
  Receipt Date: 20170722
  Transmission Date: 20171127
  Serious: Yes (Other)
  Sender: FDA-Public Use
  Company Number: None

PATIENT
  Age: 39 Year
  Sex: Male
  Weight: 60.75 kg

DRUGS (5)
  1. FISH OIL [Concomitant]
     Active Substance: FISH OIL
  2. LIALDA [Concomitant]
     Active Substance: MESALAMINE
  3. MULTIVITAMIN [Concomitant]
     Active Substance: VITAMINS
  4. VSL PROBIOTIC [Concomitant]
  5. BUDESONIDE EC [Suspect]
     Active Substance: BUDESONIDE
     Indication: COLITIS ULCERATIVE
     Dosage: ?          OTHER STRENGTH:MG/ML;QUANTITY:3 CAPSULE(S);?
     Route: 048
     Dates: start: 20170415, end: 20170515

REACTIONS (1)
  - Anxiety [None]

NARRATIVE: CASE EVENT DATE: 20170501
